FAERS Safety Report 17079708 (Version 2)
Quarter: 2019Q4

REPORT INFORMATION
  Report Type: Spontaneous
  Country: US (occurrence: US)
  Receive Date: 20191127
  Receipt Date: 20191204
  Transmission Date: 20200122
  Serious: Yes (Hospitalization, Other)
  Sender: FDA-Public Use
  Company Number: US-LUPIN PHARMACEUTICALS INC.-2019-07675

PATIENT
  Age: 52 Year
  Sex: Female
  Weight: 75 kg

DRUGS (13)
  1. VANCOMYCIN [Suspect]
     Active Substance: VANCOMYCIN
     Indication: BREAST ABSCESS
     Dosage: 1000 MILLIGRAM, QD
     Route: 042
  2. PIPERACILLIN AND TAZOBACTAM [Concomitant]
     Active Substance: PIPERACILLIN SODIUM\TAZOBACTAM SODIUM
     Indication: STAPHYLOCOCCAL INFECTION
     Dosage: UNK
     Route: 065
  3. CLINDAMYCIN. [Concomitant]
     Active Substance: CLINDAMYCIN
     Indication: STAPHYLOCOCCAL INFECTION
     Dosage: UNK
     Route: 065
  4. VANCOMYCIN [Suspect]
     Active Substance: VANCOMYCIN
     Indication: STAPHYLOCOCCAL INFECTION
     Dosage: 1500 MILLIGRAM, (20 MG/KG)
     Route: 042
  5. VANCOMYCIN [Suspect]
     Active Substance: VANCOMYCIN
     Dosage: UNK (5 DOSES)
     Route: 065
  6. FLUCONAZOLE. [Concomitant]
     Active Substance: FLUCONAZOLE
     Indication: BREAST ABSCESS
  7. AMPICILLIN AND SULBACTAM [Concomitant]
     Active Substance: AMPICILLIN SODIUM\SULBACTAM SODIUM
     Indication: BREAST ABSCESS
  8. VANCOMYCIN [Suspect]
     Active Substance: VANCOMYCIN
     Dosage: 750 MILLIGRAM, QD
     Route: 042
  9. VANCOMYCIN [Suspect]
     Active Substance: VANCOMYCIN
     Dosage: 1500 MILLIGRAM
     Route: 042
  10. FLUCONAZOLE. [Concomitant]
     Active Substance: FLUCONAZOLE
     Indication: STAPHYLOCOCCAL INFECTION
     Dosage: UNK
     Route: 065
  11. CLINDAMYCIN. [Concomitant]
     Active Substance: CLINDAMYCIN
     Indication: BREAST ABSCESS
     Dosage: UNK
     Route: 065
  12. AMPICILLIN AND SULBACTAM [Concomitant]
     Active Substance: AMPICILLIN SODIUM\SULBACTAM SODIUM
     Indication: STAPHYLOCOCCAL INFECTION
     Dosage: UNK
     Route: 065
  13. PIPERACILLIN AND TAZOBACTAM [Concomitant]
     Active Substance: PIPERACILLIN SODIUM\TAZOBACTAM SODIUM
     Indication: BREAST ABSCESS
     Dosage: UNK
     Route: 065

REACTIONS (2)
  - Treatment failure [Unknown]
  - Drug screen false positive [Unknown]
